FAERS Safety Report 16933695 (Version 1)
Quarter: 2019Q4

REPORT INFORMATION
  Report Type: Spontaneous
  Country: US (occurrence: US)
  Receive Date: 20191018
  Receipt Date: 20191018
  Transmission Date: 20200122
  Serious: No
  Sender: FDA-Public Use
  Company Number: US-TEVA-2019-US-1125754

PATIENT
  Sex: Female

DRUGS (1)
  1. COPAXONE [Suspect]
     Active Substance: GLATIRAMER ACETATE
     Route: 065

REACTIONS (6)
  - Injection site mass [Unknown]
  - Device malfunction [Unknown]
  - Injection site discolouration [Unknown]
  - Injection site induration [Unknown]
  - Injection site pain [Unknown]
  - Injection site scar [Unknown]
